FAERS Safety Report 21917392 (Version 3)
Quarter: 2023Q1

REPORT INFORMATION
  Report Type: Spontaneous
  Country: HU (occurrence: HU)
  Receive Date: 20230126
  Receipt Date: 20230218
  Transmission Date: 20230418
  Serious: Yes (Death, Hospitalization, Other)
  Sender: FDA-Public Use
  Company Number: HU-CELLTRION INC.-2023HU001291

PATIENT

DRUGS (13)
  1. RITUXIMAB [Suspect]
     Active Substance: RITUXIMAB
     Indication: Hairy cell leukaemia
     Dosage: 375 MG/M2
     Route: 042
  2. RITUXIMAB [Suspect]
     Active Substance: RITUXIMAB
     Indication: Diffuse large B-cell lymphoma
     Dosage: EIGHT CYCLES OF RITUXIMAB, EACH TIME 375 MG/M2
     Route: 042
     Dates: start: 201904
  3. RITUXIMAB [Suspect]
     Active Substance: RITUXIMAB
     Dosage: RECEIVED FOUR CYCLES OF RITUXIMAB AND LENALIDOMIDE (4X R-LEN) COMBINATION TREATMENT
     Route: 042
  4. RITUXIMAB [Suspect]
     Active Substance: RITUXIMAB
     Dosage: TREATMENT WAS SWITCHED TO A COMBINATION OF POLATUZUMAB-RITUXIMAB-BENDAMUSTINE (POLA-BR)
     Route: 042
     Dates: start: 202007
  5. RITUXIMAB [Suspect]
     Active Substance: RITUXIMAB
     Dosage: PROTOCOL CONSISTING OF POLATUZUMAB, RITUXIMAB, GEMCITABINE AND OXALIPLATIN (POLA-R-GEMOX)
  6. LENALIDOMIDE [Suspect]
     Active Substance: LENALIDOMIDE
     Indication: Hairy cell leukaemia
     Dosage: FOUR CYCLES OF RITUXIMAB AND LENALIDOMIDE (4X R-LEN)
  7. LENALIDOMIDE [Suspect]
     Active Substance: LENALIDOMIDE
     Indication: Diffuse large B-cell lymphoma
  8. OXALIPLATIN [Suspect]
     Active Substance: OXALIPLATIN
     Indication: Hairy cell leukaemia
     Dosage: POLATUZUMAB, RITUXIMAB, GEMCITABINE AND OXALIPLATIN (POLA-RGEMOX)
  9. POLATUZUMAB VEDOTIN [Suspect]
     Active Substance: POLATUZUMAB VEDOTIN
     Indication: Hairy cell leukaemia
     Dosage: POLATUZUMAB-RITUXIMAB-BENDAMUSTINE (POLA-BR), 3 CYCLES
     Dates: start: 202007
  10. POLATUZUMAB VEDOTIN [Suspect]
     Active Substance: POLATUZUMAB VEDOTIN
     Dosage: POLATUZUMAB, RITUXIMAB, GEMCITABINE AND OXALIPLATIN (POLA-RGEMOX)
  11. BENDAMUSTINE [Suspect]
     Active Substance: BENDAMUSTINE
     Indication: Hairy cell leukaemia
     Dosage: POLATUZUMAB-RITUXIMAB-BENDAMUSTINE (POLA-BR), 3 CYCLES
     Dates: start: 202007
  12. GEMCITABINE [Suspect]
     Active Substance: GEMCITABINE
     Indication: Hairy cell leukaemia
     Dosage: POLATUZUMAB, RITUXIMAB, GEMCITABINE AND OXALIPLATIN (POLA-RGEMOX)
  13. CLADRIBINE [Suspect]
     Active Substance: CLADRIBINE
     Indication: Hairy cell leukaemia
     Dosage: UNK
     Route: 058
     Dates: start: 201901

REACTIONS (9)
  - COVID-19 [Fatal]
  - Pneumonia [Fatal]
  - Perirectal abscess [Unknown]
  - Pulmonary embolism [Unknown]
  - Vertigo [Unknown]
  - Decreased appetite [Unknown]
  - Asthenia [Unknown]
  - Off label use [Unknown]
  - Product use issue [Unknown]
